FAERS Safety Report 8599935-8 (Version None)
Quarter: 2012Q3

REPORT INFORMATION
  Report Type: 
  Country: None (occurrence: None)
  Receive Date: 20120816
  Receipt Date: 20120807
  Transmission Date: 20120928
  Serious: Yes (Hospitalization)
  Sender: FDA-Public Use
  Company Number: DE-JNJFOC-20120111525

PATIENT
  Age: 7 Decade
  Sex: Male

DRUGS (6)
  1. PREDNISOLONE [Concomitant]
     Dates: start: 20110601
  2. BISOPROLOL FUMARATE [Concomitant]
  3. METHOTREXATE [Suspect]
     Dates: start: 20061101, end: 20100801
  4. METHOTREXATE [Suspect]
     Indication: RHEUMATOID ARTHRITIS
     Dates: start: 20100901
  5. ACTONEL [Concomitant]
     Dates: start: 20100201
  6. SIMPONI [Suspect]
     Indication: RHEUMATOID ARTHRITIS
     Route: 058
     Dates: start: 20110401, end: 20110901

REACTIONS (1)
  - BRONCHITIS [None]
